FAERS Safety Report 7290388-9 (Version None)
Quarter: 2011Q1

REPORT INFORMATION
  Report Type: 
  Country: None (occurrence: None)
  Receive Date: 20110214
  Receipt Date: 20110202
  Transmission Date: 20110831
  Serious: Yes (Other)
  Sender: FDA-Public Use
  Company Number: PHHY2010MX42035

PATIENT
  Age: 84 Year
  Sex: Female

DRUGS (2)
  1. CO-DIOVAN [Suspect]
     Indication: HYPERTENSION
     Dosage: 2 TABLETS (160/12.5 MG ) PER DAY
     Dates: start: 20080501
  2. DILACORON [Concomitant]

REACTIONS (3)
  - TOOTH LOSS [None]
  - INJURY [None]
  - MACULAR DEGENERATION [None]
